FAERS Safety Report 5706481-5 (Version None)
Quarter: 2008Q2

REPORT INFORMATION
  Report Type: 
  Country: None (occurrence: None)
  Receive Date: 20080414
  Receipt Date: 20080403
  Transmission Date: 20081010
  Serious: Yes (Hospitalization)
  Sender: FDA-Public Use
  Company Number: 233208J08USA

PATIENT
  Age: 61 Year
  Sex: Female
  Weight: 65.7716 kg

DRUGS (3)
  1. REBIF [Suspect]
     Indication: MULTIPLE SCLEROSIS
     Dosage: 44 MCG, 3 IN 1 WEEKS, SUBCUTANEOUS
     Route: 058
     Dates: start: 20050902, end: 20080327
  2. SEVERAL MEDICATIONS FOR HIGH BLOOD PRESSURE (OTHER ANTIHYPERTENSIVES) [Concomitant]
  3. MEDICATION FOR HIGH CHOLESTEROL (OTHER CHOLESTEROL AND TRIGLYCERIDE RE [Concomitant]

REACTIONS (12)
  - BRUXISM [None]
  - CHEST PAIN [None]
  - CONVULSION [None]
  - FALL [None]
  - HEAD INJURY [None]
  - HYPOTENSION [None]
  - LACERATION [None]
  - LOSS OF CONSCIOUSNESS [None]
  - RETCHING [None]
  - SNORING [None]
  - TREMOR [None]
  - URINARY TRACT INFECTION [None]
